FAERS Safety Report 5270481-2 (Version None)
Quarter: 2007Q1

REPORT INFORMATION
  Report Type: 
  Country: None (occurrence: None)
  Receive Date: 20070320
  Receipt Date: 20070313
  Transmission Date: 20070707
  Serious: Yes (Hospitalization, Other)
  Sender: FDA-Public Use
  Company Number: FR-PFIZER INC-2007020222

PATIENT
  Age: 17 Year
  Sex: Female

DRUGS (4)
  1. MEDROL [Suspect]
     Route: 048
     Dates: start: 20020615, end: 20060615
  2. SANDIMMUNE [Suspect]
     Dates: start: 20020615
  3. PROGRAF [Suspect]
  4. IMURAN [Suspect]
     Dates: start: 20020615, end: 20060615

REACTIONS (3)
  - BREAST ENLARGEMENT [None]
  - FIBROADENOMA OF BREAST [None]
  - KIDNEY TRANSPLANT REJECTION [None]
